FAERS Safety Report 15434276 (Version 1)
Quarter: 2018Q3

REPORT INFORMATION
  Report Type: Report from Study
  Country: US (occurrence: US)
  Receive Date: 20180927
  Receipt Date: 20180927
  Transmission Date: 20181010
  Serious: Yes (Hospitalization)
  Sender: FDA-Public Use
  Company Number: PHEH2018US039603

PATIENT
  Sex: Male

DRUGS (1)
  1. ENTRESTO [Suspect]
     Active Substance: SACUBITRIL\VALSARTAN
     Indication: CARDIAC FAILURE
     Dosage: 1 DF (24/26 MG), BID
     Route: 048

REACTIONS (5)
  - Fluid retention [Recovering/Resolving]
  - Hypersensitivity [Recovered/Resolved]
  - Heart rate abnormal [Unknown]
  - Abdominal discomfort [Unknown]
  - Hypotension [Unknown]
